FAERS Safety Report 25849738 (Version 1)
Quarter: 2025Q3

REPORT INFORMATION
  Report Type: Spontaneous
  Country: EU (occurrence: EU)
  Receive Date: 20250926
  Receipt Date: 20250926
  Transmission Date: 20251020
  Serious: Yes (Death, Hospitalization, Other)
  Sender: ROCHE
  Company Number: None

PATIENT
  Age: 57 Year
  Sex: Male

DRUGS (11)
  1. TRASTUZUMAB [Suspect]
     Active Substance: TRASTUZUMAB
     Indication: Oesophageal adenocarcinoma
     Route: 065
  2. PANTOPRAZOLE [Concomitant]
     Active Substance: PANTOPRAZOLE
  3. SITAGLIPTIN [Concomitant]
     Active Substance: SITAGLIPTIN
  4. CAPECITABINE [Concomitant]
     Active Substance: CAPECITABINE
     Indication: Oesophageal adenocarcinoma
  5. METAMIZOLE [Concomitant]
     Active Substance: METAMIZOLE
     Indication: Chest discomfort
  6. CISPLATIN [Concomitant]
     Active Substance: CISPLATIN
     Indication: Oesophageal adenocarcinoma
  7. PEMBROLIZUMAB [Concomitant]
     Active Substance: PEMBROLIZUMAB
     Indication: Oesophageal adenocarcinoma
  8. DOCETAXEL [Concomitant]
     Active Substance: DOCETAXEL
     Indication: Oesophageal adenocarcinoma
  9. CARBOPLATIN\PACLITAXEL [Concomitant]
     Active Substance: CARBOPLATIN\PACLITAXEL
     Indication: Oesophageal adenocarcinoma
  10. FLUOROURACIL [Concomitant]
     Active Substance: FLUOROURACIL
     Indication: Oesophageal adenocarcinoma
     Dosage: 800 MILLIGRAM/SQ. METER, QD [OVER 5 CONSECUTIVE DAYS EVERY 3 WEEKS]
     Route: 042
  11. NIVOLUMAB [Concomitant]
     Active Substance: NIVOLUMAB
     Indication: Oesophageal adenocarcinoma

REACTIONS (9)
  - Death [Fatal]
  - Electrocardiogram ST segment depression [Unknown]
  - Ventricular hypokinesia [Unknown]
  - Hypoxic-ischaemic encephalopathy [Unknown]
  - Ventricular fibrillation [Recovered/Resolved]
  - Cardiogenic shock [Unknown]
  - Coronary artery stenosis [Unknown]
  - Oesophageal adenocarcinoma [Unknown]
  - Lymphadenopathy [Recovered/Resolved]
